FAERS Safety Report 18690429 (Version 2)
Quarter: 2021Q1

REPORT INFORMATION
  Report Type: Spontaneous
  Country: US (occurrence: US)
  Receive Date: 20210101
  Receipt Date: 20210122
  Transmission Date: 20210419
  Serious: No
  Sender: FDA-Public Use
  Company Number: US-CELGENEUS-USA-20201207950

PATIENT
  Sex: Male

DRUGS (1)
  1. POMALYST [Suspect]
     Active Substance: POMALIDOMIDE
     Indication: PLASMA CELL MYELOMA
     Dosage: 4 MILLIGRAM
     Route: 048
     Dates: start: 20201104

REACTIONS (5)
  - Nausea [Unknown]
  - Stomatitis [Unknown]
  - Fatigue [Unknown]
  - Burning sensation [Unknown]
  - Sunburn [Unknown]

NARRATIVE: CASE EVENT DATE: 2020
